FAERS Safety Report 23628085 (Version 2)
Quarter: 2024Q1

REPORT INFORMATION
  Report Type: Spontaneous
  Country: US (occurrence: US)
  Receive Date: 20240313
  Receipt Date: 20240315
  Transmission Date: 20240409
  Serious: Yes (Other)
  Sender: FDA-Public Use
  Company Number: US-BAYER-2024A035944

PATIENT
  Age: 28 Year
  Sex: Female

DRUGS (2)
  1. MIRENA [Suspect]
     Active Substance: LEVONORGESTREL
     Indication: Intrauterine contraception
     Dosage: 20?G/DAY
     Route: 015
     Dates: start: 202011, end: 20240228
  2. MIRENA [Suspect]
     Active Substance: LEVONORGESTREL
     Indication: Polymenorrhagia

REACTIONS (2)
  - Device breakage [None]
  - Genital haemorrhage [None]
